FAERS Safety Report 21303900 (Version 1)
Quarter: 2022Q3

REPORT INFORMATION
  Report Type: Spontaneous
  Country: US (occurrence: US)
  Receive Date: 20220907
  Receipt Date: 20220907
  Transmission Date: 20221027
  Serious: No
  Sender: FDA-Public Use
  Company Number: US-PERRIGO-21US010677

PATIENT
  Age: 34 Year
  Sex: Female
  Weight: 56.689 kg

DRUGS (2)
  1. MINOXIDIL [Suspect]
     Active Substance: MINOXIDIL
     Indication: Alopecia
     Dosage: 0.5 TO 1 ML, SINGLE
     Route: 061
     Dates: start: 20210717, end: 20210717
  2. ORTHO TRI CYCLEN LO [Concomitant]
     Active Substance: ETHINYL ESTRADIOL\NORGESTIMATE
     Indication: Contraception
     Dosage: UNKNOWN, UNKNOWN
     Route: 065
     Dates: start: 2006

REACTIONS (8)
  - Skin burning sensation [Recovered/Resolved]
  - Rash [Recovered/Resolved]
  - Anxiety [Recovered/Resolved]
  - Dry skin [Recovered/Resolved]
  - Skin exfoliation [Recovered/Resolved]
  - Heart rate increased [Recovered/Resolved]
  - Product administered at inappropriate site [Recovered/Resolved]
  - Incorrect dose administered [Recovered/Resolved]

NARRATIVE: CASE EVENT DATE: 20210717
